FAERS Safety Report 9827407 (Version 3)
Quarter: 2014Q1

REPORT INFORMATION
  Report Type: Spontaneous
  Country: BR (occurrence: BR)
  Receive Date: 20140117
  Receipt Date: 20140307
  Transmission Date: 20141002
  Serious: Yes (Other)
  Sender: FDA-Public Use
  Company Number: BR-ABBVIE-14P-020-1191425-00

PATIENT
  Sex: Female
  Weight: 32 kg

DRUGS (2)
  1. DEPAKOTE SPRINKLE [Suspect]
     Indication: EPILEPSY
     Route: 048
     Dates: start: 2006
  2. TRILEPTAL [Concomitant]
     Indication: EPILEPSY
     Route: 048
     Dates: start: 2008

REACTIONS (6)
  - Paraesthesia [Recovered/Resolved]
  - Convulsion [Recovered/Resolved]
  - Convulsion [Recovered/Resolved]
  - Drooling [Recovered/Resolved]
  - Drug ineffective [Unknown]
  - Product physical issue [Unknown]
